FAERS Safety Report 21257294 (Version 6)
Quarter: 2023Q2

REPORT INFORMATION
  Report Type: Report from Study
  Country: EG (occurrence: EG)
  Receive Date: 20220826
  Receipt Date: 20230524
  Transmission Date: 20230721
  Serious: Yes (Other)
  Sender: FDA-Public Use
  Company Number: EG-NOVARTISPH-NVSC2022EG189037

PATIENT
  Age: 44 Year
  Sex: Male

DRUGS (16)
  1. COSENTYX [Suspect]
     Active Substance: SECUKINUMAB
     Indication: Psoriasis
     Dosage: 1 DOSAGE FORM, (EVERY 3 MONTHS FOR  ONE YEAR AND HALF AS A MAINTENANCE DOSE)
     Route: 065
     Dates: start: 202002
  2. COSENTYX [Suspect]
     Active Substance: SECUKINUMAB
     Dosage: UNK, QMO (2 PREFILLED PEN EVERY 10 DAYS FOR MONTH)
     Route: 065
     Dates: start: 202004
  3. COSENTYX [Suspect]
     Active Substance: SECUKINUMAB
     Dosage: 150 MG, Q2W (1 PREFILLED PEN OF COSENTYX 150MG EVERY 15 DAYS  FOR A MONTH)
     Route: 065
     Dates: start: 202005
  4. COSENTYX [Suspect]
     Active Substance: SECUKINUMAB
     Dosage: 150 MG, QMO
     Route: 058
     Dates: start: 202006
  5. COSENTYX [Suspect]
     Active Substance: SECUKINUMAB
     Dosage: 150 MG (ONE PREFILLED PEN OF COSENTYX 150 MG EVERY 2 MONTHS)
     Route: 065
  6. COSENTYX [Suspect]
     Active Substance: SECUKINUMAB
     Dosage: 150 MG
     Route: 058
  7. COSENTYX [Suspect]
     Active Substance: SECUKINUMAB
     Dosage: 150 MG
     Route: 058
  8. COSENTYX [Suspect]
     Active Substance: SECUKINUMAB
     Dosage: 150 MG (1PREFILLED PEN OF COSENTYX  150,MG EVERY 3MONTHS)
     Route: 065
     Dates: start: 202012
  9. COSENTYX [Suspect]
     Active Substance: SECUKINUMAB
     Dosage: UNK
     Route: 065
  10. COSENTYX [Suspect]
     Active Substance: SECUKINUMAB
     Dosage: 2 DOSAGE FORM, (EVERY 10 DAYS AT THE 1ST MONTH AS A LOADING DOSE)
     Route: 065
  11. COSENTYX [Suspect]
     Active Substance: SECUKINUMAB
     Dosage: 1 DOSAGE FORM, Q2W (EVERY 15 DAYS THEN DOWNGRADING TILL REACHING HIS DOSE NOW)
     Route: 065
  12. COSENTYX [Suspect]
     Active Substance: SECUKINUMAB
     Dosage: 2 DOSAGE FORM, QMO
     Route: 058
  13. BEPRA [Concomitant]
     Indication: Irritable bowel syndrome
     Dosage: 1 DOSAGE FORM, QD
     Route: 048
     Dates: start: 20220810
  14. NEUROTON [Concomitant]
     Indication: Irritable bowel syndrome
     Dosage: 1 DOSAGE FORM, QD
     Route: 048
     Dates: start: 20220810
  15. SULPIRIDE [Concomitant]
     Active Substance: SULPIRIDE
     Indication: Irritable bowel syndrome
     Dosage: 1 DOSAGE FORM, QD
     Route: 048
     Dates: start: 20220810
  16. A-Z [Concomitant]
     Indication: Hypercholesterolaemia
     Dosage: 1 DOSAGE FORM, QD
     Route: 065
     Dates: start: 20230505

REACTIONS (12)
  - Weight decreased [Not Recovered/Not Resolved]
  - Blood cholesterol increased [Unknown]
  - Symptom recurrence [Unknown]
  - Nervousness [Unknown]
  - Fatigue [Not Recovered/Not Resolved]
  - Psoriasis [Not Recovered/Not Resolved]
  - Skin exfoliation [Not Recovered/Not Resolved]
  - Deformity [Not Recovered/Not Resolved]
  - Device defective [Unknown]
  - Product use issue [Unknown]
  - Intentional product misuse [Not Recovered/Not Resolved]
  - Drug ineffective [Unknown]

NARRATIVE: CASE EVENT DATE: 20200201
